FAERS Safety Report 7138997-1 (Version None)
Quarter: 2010Q4

REPORT INFORMATION
  Report Type: 
  Country: None (occurrence: None)
  Receive Date: 20101206
  Receipt Date: 20101129
  Transmission Date: 20110411
  Serious: Yes (Hospitalization)
  Sender: FDA-Public Use
  Company Number: A0884773A

PATIENT
  Age: 88 Year
  Sex: Female

DRUGS (6)
  1. ADVAIR [Suspect]
     Indication: ASTHMA
     Dosage: 1PUFF TWICE PER DAY
     Route: 055
     Dates: start: 20090601
  2. VENTOLIN [Suspect]
     Indication: ASTHMA
     Dosage: 2PUFF AT NIGHT
     Route: 055
     Dates: start: 20090601
  3. VITAMIN TAB [Concomitant]
  4. ASCORBIC ACID [Concomitant]
  5. THYROID MEDICATION [Concomitant]
  6. BLOOD PRESSURE MEDICATION [Concomitant]

REACTIONS (3)
  - COUGH [None]
  - HAEMOPTYSIS [None]
  - LUNG INFECTION [None]
